FAERS Safety Report 12266012 (Version 1)
Quarter: 2016Q2

REPORT INFORMATION
  Report Type: Spontaneous
  Country: US (occurrence: US)
  Receive Date: 20160413
  Receipt Date: 20160413
  Transmission Date: 20160815
  Serious: No
  Sender: FDA-Public Use
  Company Number: US-GREER LABORATORIES, INC.-1050540

PATIENT
  Age: 11 Year
  Sex: Female

DRUGS (19)
  1. DOCK/SORREL MIXTURE [Suspect]
     Active Substance: RUMEX ACETOSELLA POLLEN\RUMEX CRISPUS POLLEN
     Route: 058
  2. POLLENS - TREES, TREE MIX 5 [Suspect]
     Active Substance: ACER NEGUNDO POLLEN\ACER RUBRUM POLLEN\ACER SACCHARUM POLLEN\CARYA ILLINOINENSIS POLLEN\PLATANUS OCCIDENTALIS POLLEN\QUERCUS ALBA POLLEN\QUERCUS RUBRA POLLEN\QUERCUS VIRGINIANA POLLEN\SALIX NIGRA POLLEN
     Route: 058
  3. ROUGH (REDROOT) PIGWEED [Suspect]
     Active Substance: AMARANTHUS RETROFLEXUS POLLEN
     Route: 058
  4. POLLENS - WEEDS, MARSHELDER/POVERTY MIX [Suspect]
     Active Substance: CYCLACHAENA XANTHIFOLIA POLLEN\IVA ANNUA POLLEN\IVA AXILLARIS POLLEN
     Route: 058
  5. ENGLISH PLANTAIN [Suspect]
     Active Substance: PLANTAGO LANCEOLATA POLLEN
     Route: 058
  6. STANDARDIZED GRASS POLLEN, GRASS MIX 7 [Suspect]
     Active Substance: AGROSTIS GIGANTEA POLLEN\ANTHOXANTHUM ODORATUM POLLEN\DACTYLIS GLOMERATA POLLEN\FESTUCA PRATENSIS POLLEN\LOLIUM PERENNE POLLEN\PHLEUM PRATENSE POLLEN\POA PRATENSIS POLLEN
     Route: 058
  7. STANDARDIZED BERMUDA GRASS [Suspect]
     Active Substance: CYNODON DACTYLON POLLEN
     Route: 058
  8. STANDARDIZED BERMUDA GRASS [Suspect]
     Active Substance: CYNODON DACTYLON POLLEN
     Route: 058
  9. STERILE DILUENT FOR ALLERGENIC EXTRACT (ALBUMIN (HUMAN)\PHENOL) [Suspect]
     Active Substance: ALBUMIN HUMAN\PHENOL
     Route: 058
  10. STANDARDIZED GRASS POLLEN, GRASS MIX 7 [Suspect]
     Active Substance: AGROSTIS GIGANTEA POLLEN\ANTHOXANTHUM ODORATUM POLLEN\DACTYLIS GLOMERATA POLLEN\FESTUCA PRATENSIS POLLEN\LOLIUM PERENNE POLLEN\PHLEUM PRATENSE POLLEN\POA PRATENSIS POLLEN
     Route: 058
  11. POLLENS - TREES, TREE MIX 6 [Suspect]
     Active Substance: BETULA NIGRA POLLEN\BETULA PAPYRIFERA POLLEN\BETULA PENDULA POLLEN\FAGUS GRANDIFOLIA POLLEN\FRAXINUS AMERICANA POLLEN\JUGLANS NIGRA POLLEN\POPULUS DELTOIDES POLLEN\ULMUS AMERICANA POLLEN
     Route: 058
  12. POLLENS - WEEDS, KOCHIA SCOPARIA [Suspect]
     Active Substance: BASSIA SCOPARIA POLLEN
     Route: 058
  13. INSECTS (WHOLE BODY) COCKROACH MIX [Suspect]
     Active Substance: BLATELLA GERMANICA\PERIPLANETA AMERICANA
     Route: 058
  14. POLLENS - WEEDS AND GARDEN PLANTS, RAGWEED, MIXED AMBROSIA [Suspect]
     Active Substance: AMBROSIA ARTEMISIIFOLIA POLLEN\AMBROSIA TRIFIDA POLLEN
     Route: 058
  15. MIXTURE OF STANDARDIZED MITES [Suspect]
     Active Substance: DERMATOPHAGOIDES FARINAE\DERMATOPHAGOIDES PTERONYSSINUS
     Route: 058
  16. INSECTS (WHOLE BODY) COCKROACH MIX [Suspect]
     Active Substance: BLATELLA GERMANICA\PERIPLANETA AMERICANA
     Route: 058
  17. INSECTS (WHOLE BODY) COCKROACH MIX [Suspect]
     Active Substance: BLATELLA GERMANICA\PERIPLANETA AMERICANA
     Route: 058
  18. STANDARDIZED CAT PELT [Suspect]
     Active Substance: FELIS CATUS DANDER
     Route: 058
  19. STANDARDIZED CAT HAIR [Suspect]
     Active Substance: FELIS CATUS HAIR
     Route: 058

REACTIONS (3)
  - Rhinorrhoea [Recovered/Resolved]
  - Cough [Recovered/Resolved]
  - Sneezing [Recovered/Resolved]

NARRATIVE: CASE EVENT DATE: 20160303
